FAERS Safety Report 5224244-4 (Version None)
Quarter: 2007Q1

REPORT INFORMATION
  Report Type: 
  Country: None (occurrence: None)
  Receive Date: 20070130
  Receipt Date: 20070115
  Transmission Date: 20070707
  Serious: Yes (Hospitalization, Other)
  Sender: FDA-Public Use
  Company Number: US-SHR-US-2007-001316

PATIENT
  Age: 36 Year
  Sex: Male

DRUGS (2)
  1. BETASERON [Suspect]
     Dosage: UNK, UNK
     Route: 058
     Dates: start: 20030316
  2. BETASERON [Suspect]
     Dosage: 8 MIU, EVERY 2D
     Route: 058
     Dates: start: 20061129

REACTIONS (4)
  - CEREBROVASCULAR ACCIDENT [None]
  - IRRITABILITY [None]
  - MULTIPLE SCLEROSIS [None]
  - PULMONARY EMBOLISM [None]
